FAERS Safety Report 12236248 (Version 4)
Quarter: 2017Q1

REPORT INFORMATION
  Report Type: Report from Study
  Country: None (occurrence: BR)
  Receive Date: 20160404
  Receipt Date: 20170106
  Transmission Date: 20170428
  Serious: Yes (Other)
  Sender: FDA-Public Use
  Company Number: BR-ABBVIE-16P-020-1597674-00

PATIENT
  Age: 71 Year
  Sex: Female
  Weight: 60 kg

DRUGS (3)
  1. SYNTHROID [Suspect]
     Active Substance: LEVOTHYROXINE SODIUM
     Indication: HYPOTHYROIDISM
     Route: 065
     Dates: start: 20071101
  2. DIGEPLUS [Concomitant]
     Indication: GASTRIC DISORDER
     Dosage: 1 TABLET/DAY, AT NIGHT, ONLY WHEN NEEDED
  3. TECTA [Concomitant]
     Active Substance: PANTOPRAZOLE MAGNESIUM
     Indication: GASTRIC DISORDER
     Dates: start: 2016, end: 2016

REACTIONS (10)
  - Cholelithiasis [Not Recovered/Not Resolved]
  - Retinopexy [Unknown]
  - Flatulence [Not Recovered/Not Resolved]
  - Retinal detachment [Not Recovered/Not Resolved]
  - Gastrointestinal disorder [Not Recovered/Not Resolved]
  - Diverticulitis [Not Recovered/Not Resolved]
  - Weight decreased [Not Recovered/Not Resolved]
  - Dysentery [Not Recovered/Not Resolved]
  - Hypophagia [Not Recovered/Not Resolved]
  - Visual field defect [Not Recovered/Not Resolved]

NARRATIVE: CASE EVENT DATE: 2012
